FAERS Safety Report 7724114-3 (Version None)
Quarter: 2011Q3

REPORT INFORMATION
  Report Type: 
  Country: None (occurrence: None)
  Receive Date: 20110901
  Receipt Date: 20110824
  Transmission Date: 20111222
  Serious: Yes (Hospitalization, Disabling)
  Sender: FDA-Public Use
  Company Number: DE-BAXTER-2011BH024645

PATIENT
  Age: 68 Year
  Sex: Female
  Weight: 65 kg

DRUGS (14)
  1. GAMMAGARD LIQUID [Suspect]
     Indication: SYSTEMIC LUPUS ERYTHEMATOSUS
     Route: 042
     Dates: start: 20101101
  2. GAMMAGARD LIQUID [Suspect]
     Route: 042
     Dates: start: 20110628
  3. GAMMAGARD LIQUID [Suspect]
     Route: 042
     Dates: start: 20110726
  4. CALCIMAGON [Concomitant]
     Indication: PRODUCT USED FOR UNKNOWN INDICATION
     Route: 065
  5. ATACAND [Concomitant]
     Indication: PRODUCT USED FOR UNKNOWN INDICATION
     Route: 065
  6. GAMMAGARD LIQUID [Suspect]
     Route: 042
     Dates: start: 20110301
  7. GAMMAGARD LIQUID [Suspect]
     Route: 042
     Dates: start: 20110301
  8. FRAXIPARIN [Concomitant]
     Indication: PRODUCT USED FOR UNKNOWN INDICATION
     Route: 065
  9. GAMMAGARD LIQUID [Suspect]
     Route: 042
     Dates: start: 20110726
  10. LEVOTHYROXINE SODIUM [Concomitant]
     Indication: PRODUCT USED FOR UNKNOWN INDICATION
     Route: 065
  11. GAMMAGARD LIQUID [Suspect]
     Indication: OFF LABEL USE
     Route: 042
     Dates: start: 20101101
  12. GAMMAGARD LIQUID [Suspect]
     Route: 042
     Dates: start: 20110628
  13. GAMMAGARD LIQUID [Suspect]
     Route: 042
     Dates: start: 20110301
  14. GAMMAGARD LIQUID [Suspect]
     Route: 042
     Dates: start: 20110301

REACTIONS (6)
  - INJECTION SITE THROMBOSIS [None]
  - INJECTION SITE PAIN [None]
  - URTICARIA [None]
  - INJECTION SITE ERYTHEMA [None]
  - INJECTION SITE SWELLING [None]
  - INFLAMMATION [None]
